FAERS Safety Report 6138213-3 (Version None)
Quarter: 2009Q1

REPORT INFORMATION
  Report Type: 
  Country: None (occurrence: None)
  Receive Date: 20090331
  Receipt Date: 20090324
  Transmission Date: 20090719
  Serious: Yes (Other)
  Sender: FDA-Public Use
  Company Number: A0774841A

PATIENT
  Age: 82 Year
  Sex: Female

DRUGS (7)
  1. CARVEDILOL [Suspect]
     Dosage: 25MG TWICE PER DAY
     Route: 048
     Dates: start: 20090101, end: 20090321
  2. AVAPRO [Concomitant]
  3. LASIX [Concomitant]
  4. CLONIDINE [Concomitant]
  5. XALATAN [Concomitant]
  6. ZOLOFT [Concomitant]
  7. ASPIRIN [Concomitant]

REACTIONS (6)
  - BLOOD PRESSURE INCREASED [None]
  - DIZZINESS [None]
  - DRUG INEFFECTIVE [None]
  - DYSPNOEA [None]
  - METAMORPHOPSIA [None]
  - PRURITUS GENERALISED [None]
